FAERS Safety Report 5515675-3 (Version None)
Quarter: 2007Q4

REPORT INFORMATION
  Report Type: 
  Country: None (occurrence: None)
  Receive Date: 20071113
  Receipt Date: 20070813
  Transmission Date: 20080405
  Serious: No
  Sender: FDA-Public Use
  Company Number: A0669825A

PATIENT
  Age: 71 Year
  Sex: Male

DRUGS (26)
  1. COREG [Suspect]
     Indication: HYPERTENSION
     Dosage: 12.5MG TWICE PER DAY
     Route: 048
     Dates: start: 20070401
  2. AVAPRO [Concomitant]
  3. NORVASC [Concomitant]
  4. SYNTHROID [Concomitant]
  5. ZEBETA [Concomitant]
  6. LOZOL [Concomitant]
  7. ALLOPURINOL [Concomitant]
  8. FLOXIN [Concomitant]
  9. SEPTRA [Concomitant]
  10. CENTRUM SILVER [Concomitant]
  11. FOLIC ACID [Concomitant]
  12. DOCUSATE CALCIUM [Concomitant]
  13. PREVACID [Concomitant]
  14. OMEGA 3 [Concomitant]
  15. EICOSAPENTAENOIC ACID + DOCOSAHEXANOIC ACID [Concomitant]
  16. URSO 250 [Concomitant]
  17. AZATHIOPRINE [Concomitant]
  18. TRICOR [Concomitant]
  19. ZETIA [Concomitant]
  20. ZINC SULFATE [Concomitant]
  21. KLOR-CON [Concomitant]
  22. CLARITIN [Concomitant]
  23. NASONEX [Concomitant]
  24. CLONIDINE [Concomitant]
  25. LOPERAMIDE HCL [Concomitant]
  26. OTHER MEDICATIONS [Concomitant]

REACTIONS (3)
  - HEART RATE ABNORMAL [None]
  - NAUSEA [None]
  - WEIGHT DECREASED [None]
